FAERS Safety Report 7128733 (Version 7)
Quarter: 2012Q4

REPORT INFORMATION
  Report Type: 
  Country: US (occurrence: US)
  Receive Date: 20090924
  Receipt Date: 20121015
  Transmission Date: 20130627
  Serious: Yes (Hospitalization, Disabling)
  Sender: FDA-Public Use
  Company Number: US-BAYER-200933377NA

PATIENT
  Age: 29 Year
  Sex: Female
  Weight: 78.01 kg

DRUGS (13)
  1. YASMIN [Suspect]
     Indication: ORAL CONTRACEPTION
     Dosage: UNK
     Route: 048
     Dates: start: 2004
  2. AMOXICILLIN [Concomitant]
  3. ANTITHROMBOTIC AGENTS [Concomitant]
  4. EXCEDRIN MIGRAINE [Concomitant]
  5. IBUPROFEN [Concomitant]
  6. AGGRENOX [Concomitant]
  7. PLAVIX [Concomitant]
  8. PANTOPRAZOLE [Concomitant]
  9. ASA [Concomitant]
     Dosage: 81 MG
     Route: 065
  10. TYLENOL COLD [Concomitant]
  11. TYLENOL SINUS MEDICATION [Concomitant]
  12. ZYRTEC [Concomitant]
  13. BROMPHENIRAMINE MALEATE/PHENYLEPHRINE HCL [Concomitant]

REACTIONS (8)
  - Ischaemic stroke [Recovering/Resolving]
  - Cognitive disorder [Unknown]
  - Pain [Recovering/Resolving]
  - Alopecia [Unknown]
  - Aphasia [Unknown]
  - Agraphia [Unknown]
  - Visual impairment [Unknown]
  - Learning disorder [Unknown]
